FAERS Safety Report 8170820-9 (Version None)
Quarter: 2012Q1

REPORT INFORMATION
  Report Type: 
  Country: None (occurrence: None)
  Receive Date: 20120228
  Receipt Date: 20120217
  Transmission Date: 20120608
  Serious: Yes (Disabling, Other)
  Sender: FDA-Public Use
  Company Number: PL-SANOFI-AVENTIS-F01200900878

PATIENT
  Age: 79 Year
  Sex: Male
  Weight: 78 kg

DRUGS (3)
  1. CASODEX [Suspect]
     Route: 048
     Dates: start: 20070330
  2. LEUPROLIDE ACETATE [Suspect]
     Indication: PROSTATE CANCER
     Route: 058
     Dates: start: 20070330
  3. TAMSULOSIN HCL [Concomitant]
     Indication: URINARY TRACT DISORDER
     Route: 048
     Dates: start: 20070103

REACTIONS (2)
  - BONE PAIN [None]
  - SPINAL FRACTURE [None]
